FAERS Safety Report 18232070 (Version 1)
Quarter: 2020Q3

REPORT INFORMATION
  Report Type: Spontaneous
  Country: DE (occurrence: DE)
  Receive Date: 20200904
  Receipt Date: 20200904
  Transmission Date: 20201103
  Serious: Yes (Hospitalization, Other)
  Sender: FDA-Public Use
  Company Number: NVSC2020DE240399

PATIENT
  Sex: Female

DRUGS (6)
  1. MAGNESIUM [Suspect]
     Active Substance: MAGNESIUM
     Indication: PARENTERAL NUTRITION
     Dosage: 1 UNK, QD
     Route: 065
  2. PHOSPHATE DE POTASSIUM MONOBASIC [Suspect]
     Active Substance: POTASSIUM PHOSPHATE, MONOBASIC
     Indication: PARENTERAL NUTRITION
     Dosage: 1 UNK, QD
     Route: 065
  3. CALCIUM [Suspect]
     Active Substance: CALCIUM
     Indication: PARENTERAL NUTRITION
     Dosage: 1 UNK, QD
     Route: 065
  4. SODIUM BICARBONATE. [Suspect]
     Active Substance: SODIUM BICARBONATE
     Indication: PARENTERAL NUTRITION
     Dosage: 1 UNK, QD
     Route: 065
  5. GLUCOSE [Suspect]
     Active Substance: DEXTROSE
     Indication: PARENTERAL NUTRITION
     Dosage: 1 UNK, QD
     Route: 065
  6. POTASSIUM ACETATE. [Suspect]
     Active Substance: POTASSIUM ACETATE
     Indication: PARENTERAL NUTRITION
     Dosage: 1 UNK, QD
     Route: 065

REACTIONS (4)
  - Headache [Unknown]
  - Acinetobacter sepsis [Unknown]
  - Back pain [Unknown]
  - Product contamination microbial [Unknown]
